FAERS Safety Report 4691946-8 (Version None)
Quarter: 2005Q2

REPORT INFORMATION
  Report Type: 
  Country: None (occurrence: None)
  Receive Date: 20050614
  Receipt Date: 20050602
  Transmission Date: 20051028
  Serious: Yes (Death)
  Sender: FDA-Public Use
  Company Number: 05USA0126

PATIENT
  Age: 64 Year
  Sex: Male

DRUGS (1)
  1. AGGRASTAT [Suspect]
     Indication: MYOCARDIAL INFARCTION
     Dosage: 25 MG/ML
     Dates: start: 20050513, end: 20050513

REACTIONS (2)
  - CARDIAC ARREST [None]
  - CARDIOGENIC SHOCK [None]
